FAERS Safety Report 19995429 (Version 1)
Quarter: 2021Q4

REPORT INFORMATION
  Report Type: Spontaneous
  Country: US (occurrence: US)
  Receive Date: 20211026
  Receipt Date: 20211026
  Transmission Date: 20220303
  Serious: Yes (Hospitalization)
  Sender: FDA-Public Use
  Company Number: None

PATIENT
  Age: 0 Day
  Sex: Female

DRUGS (1)
  1. BAMLANIVIMAB\ETESEVIMAB [Suspect]
     Active Substance: BAMLANIVIMAB\ETESEVIMAB
     Indication: COVID-19
     Dates: start: 20211007, end: 20211007

REACTIONS (5)
  - Acute respiratory failure [None]
  - Respiratory disorder [None]
  - Malaise [None]
  - Myalgia [None]
  - Nausea [None]

NARRATIVE: CASE EVENT DATE: 20211007
